FAERS Safety Report 9888267 (Version 1)
Quarter: 2014Q1

REPORT INFORMATION
  Report Type: Spontaneous
  Country: US (occurrence: US)
  Receive Date: 20140211
  Receipt Date: 20140211
  Transmission Date: 20141002
  Serious: No
  Sender: FDA-Public Use
  Company Number: US-TEVA-461892USA

PATIENT
  Age: 74 Year
  Sex: Male
  Weight: 33.14 kg

DRUGS (8)
  1. AZILECT [Suspect]
     Indication: PARKINSON^S DISEASE
     Dosage: .5 MILLIGRAM DAILY;
     Dates: start: 201311
  2. AZILECT [Suspect]
     Dosage: 1 MILLIGRAM DAILY;
     Dates: start: 201401
  3. REQUIP [Concomitant]
     Indication: PARKINSON^S DISEASE
  4. SINEMET [Concomitant]
     Indication: PARKINSON^S DISEASE
  5. METOPROLOL [Concomitant]
     Indication: HYPERTENSION
  6. LISINOPRIL [Concomitant]
     Indication: HYPERTENSION
  7. BABY ASPIRIN [Concomitant]
  8. VITAMIN D [Concomitant]

REACTIONS (2)
  - Abnormal dreams [Unknown]
  - Somnolence [Unknown]
